FAERS Safety Report 22803203 (Version 3)
Quarter: 2023Q4

REPORT INFORMATION
  Report Type: Report from Study
  Country: US (occurrence: US)
  Receive Date: 20230809
  Receipt Date: 20231207
  Transmission Date: 20240110
  Serious: Yes (Hospitalization, Other)
  Sender: FDA-Public Use
  Company Number: US-ARGENX-2022-ARGX-US001498

PATIENT

DRUGS (4)
  1. VYVGART [Suspect]
     Active Substance: EFGARTIGIMOD ALFA-FCAB
     Indication: Myasthenia gravis
     Dosage: 10 MG
     Route: 042
     Dates: start: 20220709
  2. PREDNISONE [Concomitant]
     Active Substance: PREDNISONE
     Indication: Product used for unknown indication
     Dosage: 2.5 MG, QOD
     Dates: start: 20150327
  3. MESTINON [Concomitant]
     Active Substance: PYRIDOSTIGMINE BROMIDE
     Indication: Product used for unknown indication
     Dosage: UNK
     Dates: start: 20141205
  4. IMURON VAC [Concomitant]
     Indication: Product used for unknown indication
     Dosage: 50 MG, DAILY

REACTIONS (24)
  - Chest pain [Unknown]
  - Blood glucose increased [Recovered/Resolved]
  - Stent placement [Recovered/Resolved]
  - Blood pressure decreased [Recovered/Resolved]
  - Gait disturbance [Unknown]
  - Feeling abnormal [Unknown]
  - Chills [Unknown]
  - Flushing [Unknown]
  - Tremor [Unknown]
  - Abdominal pain upper [Not Recovered/Not Resolved]
  - Muscular weakness [Not Recovered/Not Resolved]
  - Faeces soft [Unknown]
  - Limb discomfort [Unknown]
  - Nausea [Unknown]
  - Dizziness [Unknown]
  - Myalgia [Unknown]
  - Headache [Unknown]
  - Frequent bowel movements [Unknown]
  - Micturition urgency [Unknown]
  - Vision blurred [Unknown]
  - Vitreous floaters [Unknown]
  - Muscle fatigue [Unknown]
  - Feeling abnormal [Unknown]
  - Localised infection [Unknown]

NARRATIVE: CASE EVENT DATE: 20220823
